FAERS Safety Report 21617922 (Version 4)
Quarter: 2023Q2

REPORT INFORMATION
  Report Type: Spontaneous
  Country: JP (occurrence: JP)
  Receive Date: 20221119
  Receipt Date: 20230531
  Transmission Date: 20230721
  Serious: Yes (Other)
  Sender: FDA-Public Use
  Company Number: JP-MTPC-MTPC2022-0030933

PATIENT
  Age: 77 Year
  Sex: Male

DRUGS (5)
  1. CANAGLIFLOZIN [Suspect]
     Active Substance: CANAGLIFLOZIN
     Indication: Type 2 diabetes mellitus
     Dosage: 100 MILLIGRAM, QD
     Route: 048
     Dates: start: 202208
  2. CANAGLIFLOZIN\TENELIGLIPTIN [Suspect]
     Active Substance: CANAGLIFLOZIN\TENELIGLIPTIN
     Indication: Type 2 diabetes mellitus
     Dosage: UNK
     Route: 048
     Dates: start: 202109, end: 202207
  3. DAPAGLIFLOZIN PROPANEDIOL [Concomitant]
     Active Substance: DAPAGLIFLOZIN PROPANEDIOL
     Dosage: 5 MILLIGRAM
     Route: 065
  4. DULAGLUTIDE [Concomitant]
     Active Substance: DULAGLUTIDE
     Dosage: UNK
     Route: 065
  5. MITIGLINIDE CALCIUM;VOGLIBOSE [Concomitant]
     Dosage: MITIGLINIDE 30MG/ VOGLIBOSE 0.6MG
     Route: 065

REACTIONS (4)
  - Renal impairment [Recovered/Resolved]
  - Blood glucose abnormal [Recovered/Resolved]
  - Off label use [Recovered/Resolved]
  - Vascular stenosis [Not Recovered/Not Resolved]

NARRATIVE: CASE EVENT DATE: 20210901
